FAERS Safety Report 12965450 (Version 1)
Quarter: 2016Q4

REPORT INFORMATION
  Report Type: Spontaneous
  Country: ES (occurrence: ES)
  Receive Date: 20161122
  Receipt Date: 20161122
  Transmission Date: 20170207
  Serious: Yes (Death, Other)
  Sender: FDA-Public Use
  Company Number: ES-UNICHEM LABORATORIES LIMITED-UCM201611-000256

PATIENT
  Age: 84 Year
  Sex: Female

DRUGS (3)
  1. FENTANYL. [Suspect]
     Active Substance: FENTANYL
  2. PAROXETIN [Suspect]
     Active Substance: PAROXETINE HYDROCHLORIDE
  3. QUETIAPINE. [Suspect]
     Active Substance: QUETIAPINE

REACTIONS (2)
  - Serotonin syndrome [Unknown]
  - Cardio-respiratory arrest [Fatal]
